FAERS Safety Report 17932315 (Version 1)
Quarter: 2020Q2

REPORT INFORMATION
  Report Type: Spontaneous
  Country: US (occurrence: US)
  Receive Date: 20200624
  Receipt Date: 20200624
  Transmission Date: 20200714
  Serious: No
  Sender: FDA-Public Use
  Company Number: US-JNJFOC-20200617218

PATIENT
  Age: 50 Year
  Sex: Female
  Weight: 59.02 kg

DRUGS (1)
  1. MENS ROGAINE EXTRA STRENGTH [Suspect]
     Active Substance: MINOXIDIL
     Indication: ALOPECIA
     Dosage: HALF CAPFUL TWICE A DAY; DATE OF LAST ADMINISTRATION: 07-JUN-2020
     Route: 061
     Dates: start: 20200606

REACTIONS (4)
  - Product use issue [Unknown]
  - Overdose [Unknown]
  - Application site irritation [Recovered/Resolved]
  - Intentional product misuse [Unknown]

NARRATIVE: CASE EVENT DATE: 20200606
